FAERS Safety Report 6133275-1 (Version None)
Quarter: 2009Q1

REPORT INFORMATION
  Report Type: 
  Country: None (occurrence: None)
  Receive Date: 20090324
  Receipt Date: 20090324
  Transmission Date: 20090719
  Serious: Yes (Other)
  Sender: FDA-Public Use
  Company Number: None

PATIENT
  Age: 66 Year
  Sex: Male

DRUGS (2)
  1. ADVAIR DISKUS 250/50 [Suspect]
     Dosage: ONE INHATION TWICE DAILY
  2. . [Concomitant]

REACTIONS (2)
  - FEELING ABNORMAL [None]
  - PRODUCT QUALITY ISSUE [None]
